FAERS Safety Report 16549193 (Version 1)
Quarter: 2019Q3

REPORT INFORMATION
  Report Type: Spontaneous
  Country: US (occurrence: US)
  Receive Date: 20190709
  Receipt Date: 20190709
  Transmission Date: 20191004
  Serious: No
  Sender: FDA-Public Use
  Company Number: US-AMGEN-USASP2019107676

PATIENT
  Age: 53 Year
  Sex: Female

DRUGS (1)
  1. AIMOVIG [Suspect]
     Active Substance: ERENUMAB-AOOE
     Indication: BLOOD CHOLESTEROL ABNORMAL
     Dosage: 70 MILLIGRAM, QMO
     Route: 065

REACTIONS (5)
  - Off label use [Unknown]
  - Blood pressure increased [Not Recovered/Not Resolved]
  - Extra dose administered [Unknown]
  - Malaise [Not Recovered/Not Resolved]
  - Palpitations [Not Recovered/Not Resolved]

NARRATIVE: CASE EVENT DATE: 20190703
